FAERS Safety Report 16367289 (Version 1)
Quarter: 2019Q2

REPORT INFORMATION
  Report Type: Spontaneous
  Country: US (occurrence: US)
  Receive Date: 20190422
  Receipt Date: 20190422
  Transmission Date: 20190711
  Serious: No
  Sender: FDA-Public Use
  Company Number: None

PATIENT
  Age: 67 Year
  Sex: Male
  Weight: 78.93 kg

DRUGS (1)
  1. WARFARIN [Suspect]
     Active Substance: WARFARIN
     Indication: ATRIAL FIBRILLATION
     Dates: start: 20180608

REACTIONS (6)
  - Abdominal wall haematoma [None]
  - Cough [None]
  - International normalised ratio increased [None]
  - Epistaxis [None]
  - Abdominal pain upper [None]
  - Haemorrhage [None]

NARRATIVE: CASE EVENT DATE: 20190211
